FAERS Safety Report 6871471-6 (Version None)
Quarter: 2010Q3

REPORT INFORMATION
  Report Type: 
  Country: None (occurrence: None)
  Receive Date: 20100721
  Receipt Date: 20100712
  Transmission Date: 20110219
  Serious: Yes (Life-Threatening, Hospitalization)
  Sender: FDA-Public Use
  Company Number: 8013057

PATIENT
  Sex: Female

DRUGS (9)
  1. CERTOLIZUMAB PEGOL [Suspect]
     Indication: RHEUMATOID ARTHRITIS
     Dosage: (400 MG, ONCE MONTHLY - NR OF DOSES :24 SUBCUTANEOUS)
     Route: 058
     Dates: start: 20031215, end: 20051017
  2. TYLENOL (CAPLET) [Concomitant]
  3. MULTI-VITAMINS [Concomitant]
  4. VITAMIN C AND E [Concomitant]
  5. FOLIC ACID [Concomitant]
  6. PREDNISONE [Concomitant]
  7. CEFTRIAXONE SODIUM [Concomitant]
  8. PHENOXYMETHYLPENICILLIN [Concomitant]
  9. LEVOFLOXACIN [Concomitant]

REACTIONS (19)
  - APHASIA [None]
  - CANDIDIASIS [None]
  - DIFFUSE LARGE B-CELL LYMPHOMA [None]
  - DYSPEPSIA [None]
  - FEEDING TUBE COMPLICATION [None]
  - HEART RATE INCREASED [None]
  - HYPOTENSION [None]
  - LIVER FUNCTION TEST ABNORMAL [None]
  - MUCOSAL INFLAMMATION [None]
  - NAUSEA [None]
  - NEUTROPENIC SEPSIS [None]
  - PHARYNGITIS [None]
  - PNEUMONIA ASPIRATION [None]
  - RADIATION DYSPHAGIA [None]
  - SUDDEN ONSET OF SLEEP [None]
  - TONGUE NEOPLASM MALIGNANT STAGE UNSPECIFIED [None]
  - TONSIL CANCER [None]
  - UPPER RESPIRATORY TRACT INFECTION [None]
  - VOMITING [None]
